FAERS Safety Report 6712638-7 (Version None)
Quarter: 2010Q2

REPORT INFORMATION
  Report Type: 
  Country: None (occurrence: None)
  Receive Date: 20100505
  Receipt Date: 20100505
  Transmission Date: 20101027
  Serious: No
  Sender: FDA-Public Use
  Company Number: None

PATIENT
  Age: 66 Year
  Sex: Male

DRUGS (4)
  1. ISOVUE-300 [Suspect]
     Indication: COMPUTERISED TOMOGRAM
     Dosage: X1 IVP RAPID INFUSION
     Route: 042
     Dates: start: 20100428
  2. ROCEPHIN [Concomitant]
  3. LASIX [Concomitant]
  4. PROTONIX [Concomitant]

REACTIONS (4)
  - INFUSION SITE ERYTHEMA [None]
  - INFUSION SITE EXTRAVASATION [None]
  - INFUSION SITE SWELLING [None]
  - INFUSION SITE VESICLES [None]
